FAERS Safety Report 14133442 (Version 2)
Quarter: 2017Q4

REPORT INFORMATION
  Report Type: Spontaneous
  Country: FR (occurrence: FR)
  Receive Date: 20171027
  Receipt Date: 20171101
  Transmission Date: 20180321
  Serious: Yes (Other)
  Sender: FDA-Public Use
  Company Number: FR-MERCK KGAA-2031667

PATIENT
  Age: 55 Year
  Sex: Female

DRUGS (2)
  1. LEVOTHYROX NF [Suspect]
     Active Substance: LEVOTHYROXINE SODIUM
     Dates: end: 20170906
  2. NOVOTHYROX [Suspect]
     Active Substance: LEVOTHYROXINE SODIUM
     Indication: THYROIDECTOMY
     Route: 048
     Dates: start: 20170627, end: 20170827

REACTIONS (19)
  - Weight increased [Recovering/Resolving]
  - Blood thyroid stimulating hormone increased [Not Recovered/Not Resolved]
  - Insomnia [Recovering/Resolving]
  - Diarrhoea [Recovering/Resolving]
  - Fatigue [Recovering/Resolving]
  - Gastrooesophageal reflux disease [Recovering/Resolving]
  - Blood cholesterol increased [Not Recovered/Not Resolved]
  - Nausea [Recovering/Resolving]
  - Myalgia [Recovering/Resolving]
  - Dysphagia [Not Recovered/Not Resolved]
  - Urine odour abnormal [Not Recovered/Not Resolved]
  - Eczema [Not Recovered/Not Resolved]
  - Amnesia [Recovering/Resolving]
  - Irritability [Recovering/Resolving]
  - Arthralgia [Recovering/Resolving]
  - Oedema peripheral [Not Recovered/Not Resolved]
  - Vertigo [Recovered/Resolved]
  - Vomiting [Recovering/Resolving]
  - Product formulation issue [Recovered/Resolved]

NARRATIVE: CASE EVENT DATE: 20170704
